FAERS Safety Report 15352225 (Version 2)
Quarter: 2018Q4

REPORT INFORMATION
  Report Type: Spontaneous
  Country: GB (occurrence: GB)
  Receive Date: 20180905
  Receipt Date: 20181024
  Transmission Date: 20190204
  Serious: Yes (Other)
  Sender: FDA-Public Use
  Company Number: GB-PFIZER INC-2018353421

PATIENT
  Age: 40 Year
  Sex: Female
  Weight: 52 kg

DRUGS (4)
  1. FLUCONAZOLE. [Suspect]
     Active Substance: FLUCONAZOLE
     Dosage: UNK
     Dates: start: 20180802
  2. PREDNISOLONE. [Concomitant]
     Active Substance: PREDNISOLONE
     Dosage: 6 DF, DAILY, (FOR 3 DAYS)
     Dates: start: 20180802
  3. LOESTRIN NOS [Concomitant]
     Active Substance: ETHINYL ESTRADIOL\NORETHINDRONE ACETATE
     Dosage: UNK, (TAKE ONE AS DIRECTED)
     Dates: start: 20180709
  4. DAKTARIN [MICONAZOLE NITRATE] [Concomitant]
     Dosage: 4 DF, DAILY
     Dates: start: 20180524, end: 20180525

REACTIONS (4)
  - Oral pain [Unknown]
  - Lip swelling [Recovering/Resolving]
  - Facial pain [Unknown]
  - Rash erythematous [Unknown]

NARRATIVE: CASE EVENT DATE: 20180802
